FAERS Safety Report 17274396 (Version 1)
Quarter: 2020Q1

REPORT INFORMATION
  Report Type: Spontaneous
  Country: US (occurrence: US)
  Receive Date: 20200115
  Receipt Date: 20200115
  Transmission Date: 20200409
  Serious: Yes (Death, Life-Threatening)
  Sender: FDA-Public Use
  Company Number: US-FRESENIUS KABI-FK202000412

PATIENT
  Age: 65 Year
  Sex: Female

DRUGS (1)
  1. MICAFUNGIN (MANUFACTURER UNKOWN) [Suspect]
     Active Substance: MICAFUNGIN
     Indication: CANDIDA INFECTION
     Dosage: UNKNOWN
     Route: 065

REACTIONS (5)
  - Coccidioidomycosis [Fatal]
  - Septic shock [Not Recovered/Not Resolved]
  - Treatment failure [Fatal]
  - Acute respiratory distress syndrome [Not Recovered/Not Resolved]
  - Acute respiratory failure [Not Recovered/Not Resolved]
